FAERS Safety Report 17735431 (Version 1)
Quarter: 2020Q3

REPORT INFORMATION
  Report Type: Spontaneous
  Country: GB (occurrence: GB)
  Receive Date: 20200501
  Receipt Date: 20200501
  Transmission Date: 20201104
  Serious: Yes (Hospitalization, Disabling, Other)
  Sender: FDA-Public Use
  Company Number: GB-TEVA-2020-GB-1227881

PATIENT
  Age: 80 Year
  Weight: 76 kg

DRUGS (10)
  1. LANSOPRAZOLE. [Concomitant]
     Active Substance: LANSOPRAZOLE
  2. DOSULEPIN HYDROCHLORIDE [Concomitant]
     Active Substance: DOTHIEPIN HYDROCHLORIDE
  3. LOSARTAN POTASSIUM. [Concomitant]
     Active Substance: LOSARTAN POTASSIUM
  4. COLAZIDE [Concomitant]
     Active Substance: BALSALAZIDE DISODIUM
  5. HYOSCINE BUTYLBROMIDE [Concomitant]
     Active Substance: BUTYLSCOPOLAMINE BROMIDE
  6. LEVOTHYROXINE SODIUM. [Concomitant]
     Active Substance: LEVOTHYROXINE SODIUM
  7. EZETIMIBE. [Concomitant]
     Active Substance: EZETIMIBE
  8. ATENOLOL. [Concomitant]
     Active Substance: ATENOLOL
  9. NITRAZEPAM [Concomitant]
     Active Substance: NITRAZEPAM
  10. IBANDRONIC ACID. [Suspect]
     Active Substance: IBANDRONIC ACID
     Indication: OSTEOPOROSIS
     Dosage: 150 MILLIGRAM
     Route: 048
     Dates: start: 20081014, end: 20200410

REACTIONS (1)
  - Pathological fracture [Not Recovered/Not Resolved]
